FAERS Safety Report 5966529-X (Version None)
Quarter: 2008Q4

REPORT INFORMATION
  Report Type: 
  Country: None (occurrence: None)
  Receive Date: 20081125
  Receipt Date: 20081031
  Transmission Date: 20090506
  Serious: No
  Sender: FDA-Public Use
  Company Number: US-AMGEN-KDL316130

PATIENT
  Sex: Male

DRUGS (5)
  1. ENBREL [Suspect]
     Indication: PSORIATIC ARTHROPATHY
     Route: 058
     Dates: start: 20041122, end: 20080807
  2. ENBREL [Suspect]
     Indication: PSORIASIS
  3. METFORMIN HCL [Concomitant]
     Dates: start: 20070901
  4. FOLIC ACID [Concomitant]
     Dates: start: 20070901
  5. CHROMIUM PICOLINATE [Concomitant]
     Dates: start: 20070901

REACTIONS (3)
  - DIABETES MELLITUS [None]
  - PLATELET COUNT DECREASED [None]
  - PSORIASIS [None]
